FAERS Safety Report 5214537-9 (Version None)
Quarter: 2007Q1

REPORT INFORMATION
  Report Type: 
  Country: None (occurrence: None)
  Receive Date: 20070122
  Receipt Date: 20070115
  Transmission Date: 20070707
  Serious: Yes (Hospitalization)
  Sender: FDA-Public Use
  Company Number: US-BAXTER-2006BH013440

PATIENT
  Age: 28 Year
  Sex: Female
  Weight: 76 kg

DRUGS (2)
  1. EXTRANEAL [Suspect]
     Indication: RENAL FAILURE CHRONIC
     Dosage: DOSE UNIT:UNKNOWN
     Route: 033
     Dates: start: 20060905, end: 20060911
  2. DIANEAL [Suspect]
     Indication: RENAL FAILURE CHRONIC
     Route: 033
     Dates: start: 20060301, end: 20061122

REACTIONS (6)
  - MUSCULOSKELETAL PAIN [None]
  - NAUSEA [None]
  - PERITONITIS [None]
  - RASH PRURITIC [None]
  - SKIN BURNING SENSATION [None]
  - VOMITING [None]
